FAERS Safety Report 8837150 (Version 2)
Quarter: 2012Q4

REPORT INFORMATION
  Report Type: 
  Country: US (occurrence: US)
  Receive Date: 20121012
  Receipt Date: 20121204
  Transmission Date: 20130627
  Serious: Yes (Other)
  Sender: FDA-Public Use
  Company Number: US-009507513-1210USA004339

PATIENT
  Sex: Female

DRUGS (7)
  1. FOSAMAX [Suspect]
     Indication: OSTEOPOROSIS
     Dosage: 10 mg, qd
     Route: 048
     Dates: start: 1997, end: 201009
  2. FOSAMAX [Suspect]
     Dosage: 70 mg, qw
     Route: 048
  3. HYDROCHLOROTHIAZIDE [Concomitant]
  4. LUMIGAN [Concomitant]
  5. ALPHAGAN P [Concomitant]
  6. SYNTHROID [Concomitant]
  7. METOPROLOL [Concomitant]

REACTIONS (2)
  - Tooth extraction [Recovered/Resolved]
  - Tooth resorption [Recovered/Resolved]
